FAERS Safety Report 7257003-1 (Version None)
Quarter: 2011Q1

REPORT INFORMATION
  Report Type: 
  Country: None (occurrence: None)
  Receive Date: 20110129
  Receipt Date: 20100810
  Transmission Date: 20110831
  Serious: No
  Sender: FDA-Public Use
  Company Number: US-ABBOTT-10P-163-0658516-00

PATIENT
  Sex: Male

DRUGS (12)
  1. BYSTOLIC [Concomitant]
     Indication: BLOOD PRESSURE INCREASED
  2. POTASSIUM [Concomitant]
     Indication: MINERAL SUPPLEMENTATION
  3. TEKTURNA [Concomitant]
     Indication: BLOOD PRESSURE INCREASED
  4. BENICAR [Concomitant]
     Indication: BLOOD PRESSURE INCREASED
  5. TAMSULOSIN HCL [Concomitant]
     Indication: PROSTATOMEGALY
  6. ALLOPURINOL [Concomitant]
     Indication: GOUT
  7. FUROSEMIDE [Concomitant]
     Indication: BLOOD PRESSURE INCREASED
  8. PREDNISONE [Concomitant]
     Indication: RHEUMATOID ARTHRITIS
     Dosage: WEARING OFF
  9. WARFARIN SODIUM [Concomitant]
     Indication: THROMBOSIS
     Dosage: EXCEPT FOR WEDNESDAY AND SUNDAY WHEN HE TAKES 7.5 MG
  10. HUMIRA [Suspect]
     Indication: RHEUMATOID ARTHRITIS
     Dates: start: 20100714
  11. LANTUS [Concomitant]
     Indication: DIABETES MELLITUS
  12. METFORMIN [Concomitant]
     Indication: DIABETES MELLITUS

REACTIONS (1)
  - INJECTION SITE PAIN [None]
